FAERS Safety Report 5887104-1 (Version None)
Quarter: 2008Q3

REPORT INFORMATION
  Report Type: 
  Country: None (occurrence: None)
  Receive Date: 20080917
  Receipt Date: 20080714
  Transmission Date: 20090109
  Serious: Yes (Death, Life-Threatening, Other)
  Sender: FDA-Public Use
  Company Number: CO-PFIZER INC-2008059964

PATIENT
  Sex: Male

DRUGS (1)
  1. NEURONTIN [Suspect]
     Route: 048

REACTIONS (4)
  - CEREBRAL HAEMORRHAGE [None]
  - DEATH [None]
  - INFARCTION [None]
  - RENAL FAILURE [None]
